FAERS Safety Report 22110943 (Version 4)
Quarter: 2023Q2

REPORT INFORMATION
  Report Type: Spontaneous
  Country: JP (occurrence: None)
  Receive Date: 20230317
  Receipt Date: 20230502
  Transmission Date: 20230722
  Serious: Yes (Death, Hospitalization, Other)
  Sender: FDA-Public Use
  Company Number: 2023A060277

PATIENT
  Age: 85 Year
  Sex: Female

DRUGS (9)
  1. DAPAGLIFLOZIN [Suspect]
     Active Substance: DAPAGLIFLOZIN
     Indication: Cardiac failure chronic
     Route: 048
     Dates: start: 20230213, end: 20230306
  2. SAMSCA [Concomitant]
     Active Substance: TOLVAPTAN
     Dosage: DOSE UNKNOWN
     Dates: start: 20230227
  3. AZOSEMIDE [Concomitant]
     Active Substance: AZOSEMIDE
     Indication: Cardiac failure congestive
     Route: 048
     Dates: start: 20221215, end: 20230205
  4. AZOSEMIDE [Concomitant]
     Active Substance: AZOSEMIDE
     Indication: Cardiac failure congestive
     Route: 048
     Dates: start: 20230206, end: 20230227
  5. AZOSEMIDE [Concomitant]
     Active Substance: AZOSEMIDE
     Indication: Cardiac failure congestive
     Route: 048
     Dates: start: 20230228, end: 20230306
  6. CANDESARTAN [Concomitant]
     Active Substance: CANDESARTAN
     Route: 048
     Dates: start: 20221223, end: 20230306
  7. LORAZEPAM [Concomitant]
     Active Substance: LORAZEPAM
     Route: 048
     Dates: end: 20230306
  8. ESAXERENONE [Concomitant]
     Active Substance: ESAXERENONE
     Route: 048
     Dates: start: 20221224, end: 20230306
  9. FUROSEMIDE [Concomitant]
     Active Substance: FUROSEMIDE
     Route: 042
     Dates: start: 20230306

REACTIONS (6)
  - Sepsis [Fatal]
  - Escherichia urinary tract infection [Fatal]
  - Septic shock [Fatal]
  - Cardiac failure [Recovering/Resolving]
  - Disseminated intravascular coagulation [Fatal]
  - Product dose omission issue [Unknown]

NARRATIVE: CASE EVENT DATE: 20230227
